FAERS Safety Report 25687884 (Version 3)
Quarter: 2025Q3

REPORT INFORMATION
  Report Type: Report from Study
  Country: US (occurrence: US)
  Receive Date: 20250817
  Receipt Date: 20250826
  Transmission Date: 20251021
  Serious: Yes (Death, Other)
  Sender: ABBVIE
  Company Number: US-ABBVIE-6415279

PATIENT
  Age: 85 Year
  Sex: Male
  Weight: 52.163 kg

DRUGS (2)
  1. CREON [Suspect]
     Active Substance: PANCRELIPASE AMYLASE\PANCRELIPASE LIPASE\PANCRELIPASE PROTEASE
     Indication: Pancreatic failure
     Route: 048
     Dates: start: 20250429
  2. CREON [Suspect]
     Active Substance: PANCRELIPASE AMYLASE\PANCRELIPASE LIPASE\PANCRELIPASE PROTEASE
     Indication: Pancreatic failure
     Route: 048
     Dates: end: 202508

REACTIONS (3)
  - Death [Fatal]
  - Hypophagia [Unknown]
  - Hospice care [Unknown]

NARRATIVE: CASE EVENT DATE: 20250101
